FAERS Safety Report 6455957-4 (Version None)
Quarter: 2009Q4

REPORT INFORMATION
  Report Type: 
  Country: None (occurrence: None)
  Receive Date: 20091119
  Receipt Date: 20091028
  Transmission Date: 20100525
  Serious: Yes (Hospitalization)
  Sender: FDA-Public Use
  Company Number: DSA_32964_2008

PATIENT
  Sex: Female

DRUGS (9)
  1. DILTIAZEM HYDROCHLORIDE       (BI-TILDIEM - (DILTIAZEM HYDROCHLORIDE)) [Suspect]
     Indication: HYPERTENSION
     Dosage: (90 MG BID ORAL)
     Route: 048
     Dates: start: 20030101
  2. COAPROVEL  (COAPROVEL-IRBESARTAN/HYDROCHLORTHIAZIDE) [Suspect]
     Indication: HYPERTENSION
     Dosage: (162.5 MG QD ORAL)
     Route: 048
     Dates: start: 20081118, end: 20081128
  3. DIGOXINE NATIVELLE         (DIGOXINE NATIVELLE) (NOT SPECIFIED) [Suspect]
     Indication: DRUG USE FOR UNKNOWN INDICATION
     Dosage: (0.5 UNIT QD ORAL)
     Route: 048
     Dates: start: 20030101, end: 20081127
  4. DIFFU K [Concomitant]
  5. PREVISCAN /00789001/ [Concomitant]
  6. DEROXAT [Concomitant]
  7. DIPIPERON [Concomitant]
  8. CALCIDOSE /00108001/ [Concomitant]
  9. LASIX [Concomitant]

REACTIONS (11)
  - ATRIAL FIBRILLATION [None]
  - BRADYCARDIA [None]
  - DISORIENTATION [None]
  - DRUG INTERACTION [None]
  - HEART RATE IRREGULAR [None]
  - HYPOTENSION [None]
  - LOSS OF CONSCIOUSNESS [None]
  - MALAISE [None]
  - PRESYNCOPE [None]
  - SENSORY DISTURBANCE [None]
  - VENTRICULAR EXTRASYSTOLES [None]
